FAERS Safety Report 6871677-6 (Version None)
Quarter: 2010Q3

REPORT INFORMATION
  Report Type: 
  Country: None (occurrence: None)
  Receive Date: 20100723
  Receipt Date: 20100714
  Transmission Date: 20110219
  Serious: Yes (Hospitalization)
  Sender: FDA-Public Use
  Company Number: GXKR2010US07823

PATIENT
  Age: 23 Year
  Sex: Male

DRUGS (3)
  1. ALPRAZOLAM (NGX) [Suspect]
     Dosage: UP TO 42 TABLETS
  2. RISPERIDONE [Suspect]
     Route: 065
  3. ACETAMINOPHEN AND HYDROCODONE BITARTRATE [Suspect]
     Route: 065

REACTIONS (3)
  - ATRIOVENTRICULAR BLOCK SECOND DEGREE [None]
  - BRADYCARDIA [None]
  - INTENTIONAL DRUG MISUSE [None]
